FAERS Safety Report 11309697 (Version 2)
Quarter: 2015Q3

REPORT INFORMATION
  Report Type: Spontaneous
  Country: US (occurrence: US)
  Receive Date: 20150724
  Receipt Date: 20150820
  Transmission Date: 20151125
  Serious: Yes (Hospitalization)
  Sender: FDA-Public Use
  Company Number: US-INCYTE CORPORATION-2015IN003484

PATIENT
  Age: 74 Year
  Sex: Male
  Weight: 65.31 kg

DRUGS (13)
  1. DOXYCYCLINE MONOHYDRATE [Concomitant]
     Active Substance: DOXYCYCLINE
  2. JANUVIA [Concomitant]
     Active Substance: SITAGLIPTIN PHOSPHATE
  3. DOCQLACE [Concomitant]
     Active Substance: DOCUSATE SODIUM
  4. HYDROCORTISONE. [Concomitant]
     Active Substance: HYDROCORTISONE
  5. WARFARIN [Concomitant]
     Active Substance: WARFARIN
  6. MAGNESIUM [Concomitant]
     Active Substance: MAGNESIUM
  7. VITAMIN D                          /00107901/ [Concomitant]
     Active Substance: ERGOCALCIFEROL
  8. TUMS                               /06879101/ [Concomitant]
  9. JAKAFI [Suspect]
     Active Substance: RUXOLITINIB
     Indication: MYELOFIBROSIS
     Dosage: 20 MG, BID
     Route: 048
     Dates: start: 201504
  10. LORATADINE. [Concomitant]
     Active Substance: LORATADINE
  11. ENOXAPARIN [Concomitant]
     Active Substance: ENOXAPARIN
  12. VITAMIN B [Concomitant]
     Active Substance: VITAMIN B
  13. PANTOPRAZOLE [Concomitant]
     Active Substance: PANTOPRAZOLE SODIUM

REACTIONS (3)
  - Thrombophlebitis [Recovered/Resolved]
  - Pneumonia [Recovered/Resolved]
  - Deep vein thrombosis [Recovered/Resolved]

NARRATIVE: CASE EVENT DATE: 201507
